FAERS Safety Report 11225327 (Version 1)
Quarter: 2015Q2

REPORT INFORMATION
  Report Type: Spontaneous
  Country: US (occurrence: None)
  Receive Date: 20150626
  Receipt Date: 20150626
  Transmission Date: 20150821
  Serious: No
  Sender: FDA-Public Use
  Company Number: None

PATIENT
  Age: 40 Year
  Sex: Female
  Weight: 108.86 kg

DRUGS (14)
  1. SYNTHROID [Concomitant]
     Active Substance: LEVOTHYROXINE SODIUM
  2. IRON INFUSIONS [Concomitant]
  3. VITAMIN C [Concomitant]
     Active Substance: ASCORBIC ACID
  4. YASMIN [Concomitant]
     Active Substance: DROSPIRENONE\ETHINYL ESTRADIOL
  5. PREGABALIN. [Concomitant]
     Active Substance: PREGABALIN
  6. VITAMIN D [Concomitant]
     Active Substance: CHOLECALCIFEROL
  7. RAMIPRIL. [Concomitant]
     Active Substance: RAMIPRIL
  8. TRAMADOL [Concomitant]
     Active Substance: TRAMADOL
  9. B12 INJECTIONS [Concomitant]
  10. DEXEDRINE [Concomitant]
     Active Substance: DEXTROAMPHETAMINE SULFATE
  11. CYMBALTA [Concomitant]
     Active Substance: DULOXETINE HYDROCHLORIDE
  12. MAXALT [Concomitant]
     Active Substance: RIZATRIPTAN BENZOATE
  13. RABEPRAZOL [Concomitant]
  14. PREDNISONE. [Suspect]
     Active Substance: PREDNISONE
     Indication: MYOFASCIAL PAIN SYNDROME
     Dosage: 1 PILL FOR THREE DAYS
     Route: 048

REACTIONS (6)
  - Feeling hot [None]
  - Hyperhidrosis [None]
  - Lethargy [None]
  - Paraesthesia [None]
  - Fatigue [None]
  - Pruritus [None]

NARRATIVE: CASE EVENT DATE: 20150624
